FAERS Safety Report 4760246-X (Version None)
Quarter: 2005Q3

REPORT INFORMATION
  Report Type: 
  Country: None (occurrence: None)
  Receive Date: 20050902
  Receipt Date: 20030506
  Transmission Date: 20060218
  Serious: Yes (Hospitalization)
  Sender: FDA-Public Use
  Company Number: IT-ROCHE-337536

PATIENT
  Age: 41 Year
  Sex: Male
  Weight: 67 kg

DRUGS (14)
  1. ENFUVIRTIDE [Suspect]
     Indication: HIV INFECTION
     Route: 058
     Dates: start: 20030409, end: 20030415
  2. ENFUVIRTIDE [Suspect]
     Route: 058
     Dates: end: 20030922
  3. ENFUVIRTIDE [Suspect]
     Route: 058
     Dates: start: 20030926
  4. LAMIVUDINE [Suspect]
     Indication: DRUG USE FOR UNKNOWN INDICATION
     Route: 065
     Dates: start: 20030409, end: 20030415
  5. LAMIVUDINE [Suspect]
     Route: 065
  6. TENOFOVIR [Suspect]
     Indication: DRUG USE FOR UNKNOWN INDICATION
     Route: 065
     Dates: start: 20030409, end: 20030414
  7. TENOFOVIR [Suspect]
     Route: 065
  8. AMPRENAVIR [Suspect]
     Indication: DRUG USE FOR UNKNOWN INDICATION
     Route: 065
     Dates: start: 20030409, end: 20030415
  9. AMPRENAVIR [Suspect]
     Route: 065
  10. RITONAVIR [Suspect]
     Indication: DRUG USE FOR UNKNOWN INDICATION
     Route: 065
     Dates: start: 20030409, end: 20030414
  11. RITONAVIR [Suspect]
     Route: 065
  12. DAPSONE [Concomitant]
     Dates: start: 20030402
  13. PIRIMETAMINA [Concomitant]
     Dosage: DOSE STATED AS 50MG PER WEEK.
     Dates: start: 20030402
  14. PREDNISONE TAB [Concomitant]
     Dates: start: 20030308

REACTIONS (4)
  - BLOOD AMYLASE INCREASED [None]
  - HYPERLACTACIDAEMIA [None]
  - LIPASE INCREASED [None]
  - SALMONELLA SEPSIS [None]
